FAERS Safety Report 8985261 (Version 3)
Quarter: 2013Q1

REPORT INFORMATION
  Report Type: Spontaneous
  Country: US (occurrence: US)
  Receive Date: 20121226
  Receipt Date: 20130115
  Transmission Date: 20140127
  Serious: Yes (Death, Hospitalization, Other)
  Sender: FDA-Public Use
  Company Number: US-PFIZER INC-2012324829

PATIENT
  Age: 78 Year
  Sex: Female

DRUGS (11)
  1. SUMATRIPTAN SUCCINATE [Suspect]
     Indication: MIGRAINE
     Dosage: 25 MG, AS NEEDED
     Route: 048
  2. CYCLOSPORINE [Suspect]
     Dosage: 25 MG, 4X/DAY
     Route: 065
  3. PREDNISONE [Concomitant]
     Dosage: 5 MG,1 D
     Route: 065
  4. DILTIAZEM [Concomitant]
     Dosage: 120 MG,1 D
     Route: 065
  5. ATENOLOL [Concomitant]
     Dosage: 50 MG,1 D
     Route: 065
  6. ALLOPURINOL [Concomitant]
     Dosage: 150 MG,1 D
     Route: 065
  7. METHIMAZOLE [Concomitant]
     Dosage: 2.5 MG,1 D
     Route: 065
  8. RISEDRONATE [Concomitant]
     Dosage: 35 MG, WEEKLY
     Route: 065
  9. TEMAZEPAM [Concomitant]
     Dosage: UNK, AS NEEDED
  10. ALPRAZOLAM [Concomitant]
     Dosage: UNK, AS NEEDED
     Route: 065
  11. FUROSEMIDE [Concomitant]
     Dosage: UNK, AS NEEDED
     Route: 065

REACTIONS (5)
  - Renal infarct [Fatal]
  - Vasospasm [Not Recovered/Not Resolved]
  - Renal failure acute [Unknown]
  - Anuria [Unknown]
  - Graft complication [Unknown]
